FAERS Safety Report 9275031 (Version 1)
Quarter: 2013Q2

REPORT INFORMATION
  Report Type: Spontaneous
  Country: US (occurrence: None)
  Receive Date: 20130429
  Receipt Date: 20130429
  Transmission Date: 20140414
  Serious: Yes (Other)
  Sender: FDA-Public Use
  Company Number: 1687939

PATIENT
  Age: 83 Year
  Sex: Male

DRUGS (6)
  1. ASCORBIC ACID [Suspect]
     Route: 042
  2. SILVER [Suspect]
     Route: 042
  3. MULTIVITAMIN [Concomitant]
  4. VITAMIN C [Concomitant]
  5. VITAMIN B1 [Concomitant]
  6. ARMOUR THYROID [Concomitant]

REACTIONS (9)
  - Crystal nephropathy [None]
  - Renal failure [None]
  - Nausea [None]
  - Fatigue [None]
  - Blood sodium decreased [None]
  - Blood potassium increased [None]
  - Blood alkaline phosphatase increased [None]
  - Blood bilirubin increased [None]
  - Haemodialysis [None]
